FAERS Safety Report 9628732 (Version 1)
Quarter: 2013Q4

REPORT INFORMATION
  Report Type: Report from Study
  Country: CA (occurrence: CA)
  Receive Date: 20131017
  Receipt Date: 20131017
  Transmission Date: 20140711
  Serious: Yes (Other)
  Sender: FDA-Public Use
  Company Number: CA-JNJFOC-20131006952

PATIENT
  Age: 39 Year
  Sex: Female
  Weight: 100 kg

DRUGS (5)
  1. REMICADE [Suspect]
     Indication: CROHN^S DISEASE
     Route: 042
  2. REMICADE [Suspect]
     Indication: CROHN^S DISEASE
     Route: 042
     Dates: start: 20130930
  3. IMURAN [Concomitant]
     Route: 065
  4. SALOFALK [Concomitant]
     Route: 065
  5. PENTASA [Concomitant]
     Route: 065

REACTIONS (2)
  - Infusion related reaction [Unknown]
  - Loss of consciousness [Unknown]
